FAERS Safety Report 24538477 (Version 3)
Quarter: 2025Q3

REPORT INFORMATION
  Report Type: Report from Study
  Country: US (occurrence: US)
  Receive Date: 20241023
  Receipt Date: 20250803
  Transmission Date: 20251021
  Serious: Yes (Other)
  Sender: ALEXION PHARMACEUTICALS
  Company Number: US-ALXN-202410USA013420US

PATIENT
  Age: 11 Year
  Sex: Male

DRUGS (1)
  1. STRENSIQ [Suspect]
     Active Substance: ASFOTASE ALFA
     Indication: Phosphorus metabolism disorder
     Dosage: 60 MILLIGRAM, TIW
     Route: 065

REACTIONS (4)
  - Papilloedema [Unknown]
  - Growth retardation [Unknown]
  - Carbon dioxide decreased [Unknown]
  - Vitamin B6 increased [Unknown]
